FAERS Safety Report 6234908-1 (Version None)
Quarter: 2009Q2

REPORT INFORMATION
  Report Type: 
  Country: None (occurrence: None)
  Receive Date: 20090618
  Receipt Date: 20090615
  Transmission Date: 20091009
  Serious: Yes (Other)
  Sender: FDA-Public Use
  Company Number: A0769113A

PATIENT
  Age: 90 Year
  Sex: Female
  Weight: 62.9 kg

DRUGS (18)
  1. ADVAIR HFA [Suspect]
     Indication: ASTHMA
     Dosage: 1PUFF TWICE PER DAY
     Route: 055
     Dates: start: 19990101
  2. PROVENTIL-HFA [Suspect]
     Dates: start: 20090101
  3. ALBUTEROL [Concomitant]
     Dosage: 2PUFF AS REQUIRED
  4. PROVENTIL-HFA [Concomitant]
     Dosage: 2PUFF AS REQUIRED
  5. PREDNISONE [Concomitant]
     Route: 048
     Dates: start: 20041101
  6. OMEPRAZOLE [Concomitant]
     Dosage: 20MG PER DAY
     Route: 048
  7. FERROSULFAT [Concomitant]
     Dosage: 325MG PER DAY
     Route: 048
  8. VITAMIN D CALCIUM [Concomitant]
     Dosage: 1200MG PER DAY
     Route: 048
  9. CENTRUM SILVER [Concomitant]
     Route: 048
  10. GLUCOSAMINE [Concomitant]
     Route: 048
  11. CHONDROITIN [Concomitant]
     Route: 048
  12. MSM [Concomitant]
     Route: 048
  13. LISINOPRIL [Concomitant]
     Indication: HYPERTENSION
     Dosage: 10MG PER DAY
     Route: 048
     Dates: start: 20060801
  14. EYE MEDICATION [Concomitant]
     Route: 048
  15. TRAVATAN [Concomitant]
  16. PERCOCET [Concomitant]
     Route: 048
     Dates: start: 20080301, end: 20090201
  17. CITALOPRAM HYDROBROMIDE [Concomitant]
     Dosage: 20MG PER DAY
     Route: 048
     Dates: start: 20090101
  18. ALPRAZOLAM [Concomitant]
     Route: 048
     Dates: start: 20090201

REACTIONS (6)
  - CATARACT OPERATION [None]
  - DYSPNOEA [None]
  - GLAUCOMA [None]
  - MOVEMENT DISORDER [None]
  - OSTEOPOROSIS [None]
  - SPINAL COMPRESSION FRACTURE [None]
